FAERS Safety Report 22221402 (Version 2)
Quarter: 2023Q2

REPORT INFORMATION
  Report Type: Report from Study
  Country: MX (occurrence: MX)
  Receive Date: 20230418
  Receipt Date: 20230527
  Transmission Date: 20230721
  Serious: Yes (Other)
  Sender: FDA-Public Use
  Company Number: MX-002147023-NVSC2021MX106376

PATIENT
  Age: 75 Year
  Sex: Female
  Weight: 82 kg

DRUGS (2)
  1. HYDROCHLOROTHIAZIDE\VALSARTAN [Suspect]
     Active Substance: HYDROCHLOROTHIAZIDE\VALSARTAN
     Indication: Blood pressure measurement
     Dosage: 1 DOSAGE FORM, QD
     Route: 048
     Dates: start: 2011
  2. HYDROCHLOROTHIAZIDE\VALSARTAN [Suspect]
     Active Substance: HYDROCHLOROTHIAZIDE\VALSARTAN
     Dosage: 1 DOSAGE FORM, QD (MORE THAN 5 YEARS)
     Route: 048
     Dates: start: 2018, end: 20230312

REACTIONS (10)
  - Thrombosis [Unknown]
  - Cardiovascular disorder [Not Recovered/Not Resolved]
  - Limb discomfort [Not Recovered/Not Resolved]
  - Vascular pain [Not Recovered/Not Resolved]
  - Memory impairment [Not Recovered/Not Resolved]
  - Venous occlusion [Recovering/Resolving]
  - Gait disturbance [Unknown]
  - Blood pressure increased [Unknown]
  - Peripheral venous disease [Unknown]
  - Peripheral swelling [Not Recovered/Not Resolved]

NARRATIVE: CASE EVENT DATE: 20200601
